FAERS Safety Report 16145176 (Version 2)
Quarter: 2019Q2

REPORT INFORMATION
  Report Type: Spontaneous
  Country: GB (occurrence: GB)
  Receive Date: 20190402
  Receipt Date: 20190506
  Transmission Date: 20190711
  Serious: Yes (Other)
  Sender: FDA-Public Use
  Company Number: GB-009507513-1903GBR011669

PATIENT
  Sex: Male

DRUGS (1)
  1. TEMODAL [Suspect]
     Active Substance: TEMOZOLOMIDE
     Dosage: UNK (FIRST CYCLE 1 MONTH AGO)
     Dates: start: 201902

REACTIONS (2)
  - General physical health deterioration [Unknown]
  - Dysphagia [Unknown]

NARRATIVE: CASE EVENT DATE: 201902
